FAERS Safety Report 6781946-6 (Version None)
Quarter: 2010Q2

REPORT INFORMATION
  Report Type: 
  Country: None (occurrence: None)
  Receive Date: 20100621
  Receipt Date: 20100616
  Transmission Date: 20101027
  Serious: Yes (Death)
  Sender: FDA-Public Use
  Company Number: AU-EISAI INC.-E3810-03888-SPO-AU

PATIENT
  Sex: Female

DRUGS (1)
  1. PARIET (RABEPRAZOLE) [Suspect]
     Indication: GASTROOESOPHAGEAL REFLUX DISEASE
     Dosage: UNKNOWN
     Route: 048

REACTIONS (1)
  - GASTRIC CANCER [None]
